FAERS Safety Report 15643760 (Version 4)
Quarter: 2019Q1

REPORT INFORMATION
  Report Type: Spontaneous
  Country: DE (occurrence: DE)
  Receive Date: 20181121
  Receipt Date: 20190129
  Transmission Date: 20190417
  Serious: Yes (Life-Threatening, Other)
  Sender: FDA-Public Use
  Company Number: DE-JNJFOC-20181127219

PATIENT
  Age: 51 Year
  Sex: Male
  Weight: 71 kg

DRUGS (4)
  1. ITRACONAZOLE. [Suspect]
     Active Substance: ITRACONAZOLE
     Indication: ONYCHOMYCOSIS
     Route: 048
     Dates: start: 2018
  2. ITRACONAZOLE. [Suspect]
     Active Substance: ITRACONAZOLE
     Indication: ONYCHOMYCOSIS
     Dosage: DOSAGE: INITIALLY 200MG FOR 4 WEEKS, GRADUALLY DECREASING TO 3 TIMES 100 MG/ WEEK
     Route: 048
     Dates: start: 20171201, end: 201802
  3. ITRACONAZOLE. [Suspect]
     Active Substance: ITRACONAZOLE
     Indication: ONYCHOMYCOSIS
     Route: 048
     Dates: start: 201803, end: 201804
  4. ITRACONAZOLE. [Suspect]
     Active Substance: ITRACONAZOLE
     Indication: ONYCHOMYCOSIS
     Route: 048
     Dates: start: 201804, end: 201808

REACTIONS (4)
  - Headache [Recovered/Resolved]
  - Coagulopathy [Recovered/Resolved]
  - Subdural haematoma [Recovered/Resolved]
  - Adverse reaction [Recovered/Resolved]

NARRATIVE: CASE EVENT DATE: 20180601
